FAERS Safety Report 5717057-8 (Version None)
Quarter: 2008Q2

REPORT INFORMATION
  Report Type: 
  Country: None (occurrence: None)
  Receive Date: 20080424
  Receipt Date: 20080416
  Transmission Date: 20081010
  Serious: Yes (Other)
  Sender: FDA-Public Use
  Company Number: NL-PFIZER INC-2008007679

PATIENT
  Sex: Male
  Weight: 81 kg

DRUGS (11)
  1. MARAVIROC [Suspect]
     Indication: HIV TEST POSITIVE
     Route: 048
  2. FUZEON [Concomitant]
  3. ETHAMBUTOL HYDROCHLORIDE [Concomitant]
  4. CLARITHROMYCIN [Concomitant]
  5. DIAFEN [Concomitant]
  6. SODIUM BICARBONATE [Concomitant]
  7. ALBUTEROL [Concomitant]
  8. TRUVADA [Concomitant]
  9. KALETRA [Concomitant]
  10. NOVORAPID [Concomitant]
  11. LANTUS [Concomitant]

REACTIONS (1)
  - SQUAMOUS CELL CARCINOMA [None]
